FAERS Safety Report 5355435-X (Version None)
Quarter: 2007Q2

REPORT INFORMATION
  Report Type: 
  Country: None (occurrence: None)
  Receive Date: 20070613
  Receipt Date: 20070611
  Transmission Date: 20071010
  Serious: Yes (Hospitalization)
  Sender: FDA-Public Use
  Company Number: US-BRACCO-BDI-009651

PATIENT
  Sex: Female

DRUGS (1)
  1. ISOVUE-300 [Suspect]
     Route: 033
     Dates: start: 20070531, end: 20070531

REACTIONS (4)
  - ABDOMINAL PAIN [None]
  - CHILLS [None]
  - PANCREATITIS [None]
  - VOMITING [None]
